FAERS Safety Report 9483636 (Version 1)
Quarter: 2013Q3

REPORT INFORMATION
  Report Type: Spontaneous
  Country: CA (occurrence: CA)
  Receive Date: 20130828
  Receipt Date: 20130828
  Transmission Date: 20140515
  Serious: Yes (Hospitalization)
  Sender: FDA-Public Use
  Company Number: CA-AMGEN-KDL300042

PATIENT
  Age: 76 Year
  Sex: Male
  Weight: 68.1 kg

DRUGS (1)
  1. ENBREL [Suspect]
     Indication: RHEUMATOID ARTHRITIS
     Dosage: UNK UNK, QWK
     Route: 058
     Dates: start: 20060729, end: 20071001

REACTIONS (4)
  - Wound [Unknown]
  - Angina pectoris [Unknown]
  - Staphylococcal infection [Unknown]
  - Lower extremity mass [Unknown]
